FAERS Safety Report 8134991-2 (Version None)
Quarter: 2012Q1

REPORT INFORMATION
  Report Type: 
  Country: None (occurrence: None)
  Receive Date: 20120214
  Receipt Date: 20120207
  Transmission Date: 20120608
  Serious: No
  Sender: FDA-Public Use
  Company Number: US-PFIZER INC-2012016152

PATIENT
  Sex: Female
  Weight: 81.633 kg

DRUGS (7)
  1. FLECTOR [Suspect]
     Indication: PAIN
     Dosage: UNK
  2. XANAX [Concomitant]
     Indication: ANXIETY
     Dosage: UNK, AS NEEDED
  3. FLECTOR [Suspect]
     Indication: SCIATICA
     Dosage: UNK
     Route: 062
     Dates: start: 20120119
  4. ATENOLOL [Concomitant]
     Dosage: UNK
  5. HYTRIN [Concomitant]
     Dosage: 500 MG, DAILY
  6. ALLOPURINOL [Concomitant]
     Dosage: UNK
  7. ZANTAC [Concomitant]
     Dosage: UNK

REACTIONS (1)
  - DRUG INEFFECTIVE [None]
